FAERS Safety Report 21338603 (Version 2)
Quarter: 2022Q4

REPORT INFORMATION
  Report Type: Spontaneous
  Country: US (occurrence: None)
  Receive Date: 20220915
  Receipt Date: 20221102
  Transmission Date: 20230112
  Serious: Yes (Other)
  Sender: FDA-Public Use
  Company Number: 2022A311923

PATIENT
  Sex: Male

DRUGS (1)
  1. CALQUENCE [Suspect]
     Active Substance: ACALABRUTINIB
     Indication: Neoplasm malignant
     Route: 048

REACTIONS (8)
  - Chest pain [Unknown]
  - Cardiac discomfort [Unknown]
  - Myocardial ischaemia [Unknown]
  - Haemoglobin decreased [Unknown]
  - Lymphadenopathy [Unknown]
  - Pain [Unknown]
  - Splenomegaly [Unknown]
  - Haemorrhage [Unknown]
